FAERS Safety Report 22393320 (Version 1)
Quarter: 2023Q2

REPORT INFORMATION
  Report Type: Spontaneous
  Country: US (occurrence: US)
  Receive Date: 20230601
  Receipt Date: 20230601
  Transmission Date: 20230722
  Serious: No
  Sender: FDA-Public Use
  Company Number: US-JNJFOC-20230563928

PATIENT
  Age: 38 Year
  Sex: Male

DRUGS (17)
  1. PREZISTA [Suspect]
     Active Substance: DARUNAVIR ETHANOLATE
     Indication: HIV infection
     Route: 048
     Dates: start: 20080227, end: 20130331
  2. PREZISTA [Suspect]
     Active Substance: DARUNAVIR ETHANOLATE
     Route: 048
     Dates: start: 20130401
  3. EMTRICITABINE\TENOFOVIR DISOPROXIL FUMARATE [Suspect]
     Active Substance: EMTRICITABINE\TENOFOVIR DISOPROXIL FUMARATE
     Indication: HIV infection
     Route: 048
     Dates: start: 20050609, end: 20170304
  4. ISENTRESS [Concomitant]
     Active Substance: RALTEGRAVIR POTASSIUM
     Indication: HIV infection
     Dates: start: 20090325, end: 20181031
  5. NORVIR [Concomitant]
     Active Substance: RITONAVIR
     Indication: HIV infection
     Route: 048
  6. NORVIR [Concomitant]
     Active Substance: RITONAVIR
     Route: 048
     Dates: start: 20080227, end: 20110524
  7. NORVIR [Concomitant]
     Active Substance: RITONAVIR
     Route: 048
     Dates: start: 20110525
  8. RETROVIR [Concomitant]
     Active Substance: ZIDOVUDINE
     Indication: HIV infection
     Route: 048
     Dates: start: 20110119
  9. MARAVIROC [Concomitant]
     Active Substance: MARAVIROC
     Dates: start: 20120905
  10. HEPSERA [Concomitant]
     Active Substance: ADEFOVIR DIPIVOXIL
     Dates: start: 20111207, end: 20230328
  11. ALLOPURINOL [Concomitant]
     Active Substance: ALLOPURINOL
     Dates: start: 20060401, end: 20150727
  12. AZITHROMYCIN DIHYDRATE [Concomitant]
     Active Substance: AZITHROMYCIN DIHYDRATE
     Dates: start: 20120328, end: 20150727
  13. ZOPICLONE [Concomitant]
     Active Substance: ZOPICLONE
     Dates: start: 20130401, end: 20171206
  14. EDURANT [Concomitant]
     Active Substance: RILPIVIRINE HYDROCHLORIDE
     Indication: HIV infection
     Route: 048
     Dates: start: 20120905
  15. REYATAZ [Concomitant]
     Active Substance: ATAZANAVIR SULFATE
     Indication: HIV infection
     Route: 048
     Dates: start: 20050609, end: 20080226
  16. INTELENCE [Concomitant]
     Active Substance: ETRAVIRINE
     Indication: HIV infection
     Route: 048
     Dates: start: 20101216, end: 20101223
  17. KALETRA [Concomitant]
     Active Substance: LOPINAVIR\RITONAVIR
     Indication: HIV infection
     Route: 048
     Dates: start: 20031227, end: 20050608

REACTIONS (13)
  - Blood bilirubin increased [Recovering/Resolving]
  - Vertigo [Unknown]
  - Transaminases increased [Unknown]
  - Blood triglycerides increased [Unknown]
  - Gamma-glutamyltransferase increased [Unknown]
  - Protein total increased [Unknown]
  - Herpes zoster [Unknown]
  - Gastrooesophageal reflux disease [Unknown]
  - Hepatitis B DNA increased [Unknown]
  - Oral candidiasis [Unknown]
  - Hyperphosphatasaemia [Not Recovered/Not Resolved]
  - Obesity [Unknown]
  - Dizziness [Unknown]

NARRATIVE: CASE EVENT DATE: 20050713
